FAERS Safety Report 12873024 (Version 1)
Quarter: 2016Q4

REPORT INFORMATION
  Report Type: Spontaneous
  Country: US (occurrence: US)
  Receive Date: 20161021
  Receipt Date: 20161021
  Transmission Date: 20170207
  Serious: No
  Sender: FDA-Public Use
  Company Number: US-TEVA-697503ACC

PATIENT
  Sex: Female

DRUGS (1)
  1. PARAGARD T 380A [Suspect]
     Active Substance: COPPER
     Indication: CONTRACEPTION
     Dates: start: 20060809, end: 20160916

REACTIONS (3)
  - Expired product administered [Unknown]
  - Device use issue [Unknown]
  - Device breakage [Unknown]

NARRATIVE: CASE EVENT DATE: 20160916
